FAERS Safety Report 7036104-7 (Version None)
Quarter: 2010Q4

REPORT INFORMATION
  Report Type: 
  Country: None (occurrence: None)
  Receive Date: 20101008
  Receipt Date: 20091022
  Transmission Date: 20110411
  Serious: No
  Sender: FDA-Public Use
  Company Number: US-BRISTOL-MYERS SQUIBB COMPANY-14828982

PATIENT
  Sex: Female

DRUGS (1)
  1. AVAPRO [Suspect]
     Dosage: 1 DOSAGE FORM = HALVES OF THE CUT 300 MG

REACTIONS (2)
  - BLOOD PRESSURE FLUCTUATION [None]
  - DYSPHAGIA [None]
